FAERS Safety Report 9885341 (Version 2)
Quarter: 2014Q1

REPORT INFORMATION
  Report Type: Spontaneous
  Country: FR (occurrence: FR)
  Receive Date: 20140210
  Receipt Date: 20140210
  Transmission Date: 20141002
  Serious: Yes (Other)
  Sender: FDA-Public Use
  Company Number: PHHY2013FR149436

PATIENT
  Sex: Female

DRUGS (6)
  1. SIGNIFOR [Suspect]
     Indication: ACROMEGALY
     Dosage: 600 UG, BID
  2. SIGNIFOR [Suspect]
     Indication: OFF LABEL USE
     Dosage: 900 UG, BID
  3. SOMAVERT [Concomitant]
     Indication: ACROMEGALY
     Dosage: 50 MG, QD
     Dates: start: 201201
  4. METFORMIN [Concomitant]
     Indication: DIABETES MELLITUS
     Dosage: 200 MG, QD
     Route: 048
     Dates: start: 201201
  5. NOVONORM [Concomitant]
     Indication: DIABETES MELLITUS
     Dosage: 2 UG, QD
     Route: 048
     Dates: start: 20130117
  6. LEVOTHYROX [Concomitant]
     Dosage: 75 UG, QD
     Dates: start: 20130829

REACTIONS (10)
  - Hyperglycaemia [Not Recovered/Not Resolved]
  - Fatigue [Unknown]
  - Polydipsia [Unknown]
  - Hypoglycaemia [Not Recovered/Not Resolved]
  - Vision blurred [Unknown]
  - Dizziness [Unknown]
  - Tremor [Unknown]
  - Hunger [Unknown]
  - Tachycardia [Unknown]
  - Balance disorder [Unknown]
